FAERS Safety Report 6075957-6 (Version None)
Quarter: 2009Q1

REPORT INFORMATION
  Report Type: 
  Country: None (occurrence: None)
  Receive Date: 20090209
  Receipt Date: 20090128
  Transmission Date: 20090719
  Serious: Yes (Hospitalization)
  Sender: FDA-Public Use
  Company Number: 2009-190558-NL

PATIENT
  Age: 40 Year
  Sex: Female

DRUGS (18)
  1. ROCURONIUM BROMIDE [Suspect]
     Indication: ANAESTHESIA
     Dosage: 40 MG ONCE, INTRAVENOUS BOLUS
     Route: 040
     Dates: start: 20080821, end: 20080821
  2. MAGNESIUM SULFATE [Suspect]
     Indication: UTERINE HYPERTONUS
     Dosage: 4 ML TID, INTRAVENOUS (NOS)
     Route: 042
     Dates: start: 20080818, end: 20080821
  3. THIOPENTAL SODIUM [Concomitant]
  4. LAUGHING GAS [Concomitant]
  5. SEVOFLURANE [Concomitant]
  6. MIDAZOLAM HCL [Concomitant]
  7. FENTANYL CITRATE [Concomitant]
  8. REMIFENTANIL HYDROCHLORIDE [Concomitant]
  9. RITODRINE HYDROCHLORIDE [Concomitant]
  10. METHERGINE [Concomitant]
  11. CEFAZOLIN SODIUM [Concomitant]
  12. FLURBIPROFEN ACETIL [Concomitant]
  13. PROPOFOL [Concomitant]
  14. DOPAMINE HYDROCHLORIDE [Concomitant]
  15. ANTITHROMBIN III [Concomitant]
  16. HEPARIN SODIUM [Concomitant]
  17. BUFFERIN [Concomitant]
  18. BEETAMETHASONE [Concomitant]

REACTIONS (6)
  - ANAESTHETIC COMPLICATION [None]
  - DRUG EXPOSURE DURING PREGNANCY [None]
  - NEUROMUSCULAR BLOCK PROLONGED [None]
  - PLACENTA PRAEVIA [None]
  - PREMATURE BABY [None]
  - THREATENED LABOUR [None]
